FAERS Safety Report 4594419-6 (Version None)
Quarter: 2005Q1

REPORT INFORMATION
  Report Type: 
  Country: None (occurrence: None)
  Receive Date: 20050301
  Receipt Date: 20040128
  Transmission Date: 20050727
  Serious: No
  Sender: FDA-Public Use
  Company Number: US-GLAXOSMITHKLINE-A0495334A

PATIENT
  Age: 73 Year
  Sex: Male

DRUGS (6)
  1. VALTREX [Suspect]
     Dosage: 1G THREE TIMES PER DAY
     Route: 048
     Dates: start: 20040115, end: 20040122
  2. ISOSORBIDE [Concomitant]
  3. ECOTRIN [Concomitant]
  4. LOVASTATIN [Concomitant]
  5. FOSINOPRIL [Concomitant]
  6. TOPROL-XL [Concomitant]

REACTIONS (1)
  - DRUG INEFFECTIVE [None]
